FAERS Safety Report 6840626-9 (Version None)
Quarter: 2010Q3

REPORT INFORMATION
  Report Type: 
  Country: None (occurrence: None)
  Receive Date: 20100714
  Receipt Date: 20100701
  Transmission Date: 20110219
  Serious: No
  Sender: FDA-Public Use
  Company Number: US-ELI_LILLY_AND_COMPANY-US201006002061

PATIENT
  Age: 42 Year
  Sex: Female

DRUGS (1)
  1. CYMBALTA [Suspect]
     Dosage: 60 MG, UNK
     Dates: end: 20100501

REACTIONS (7)
  - ABDOMINAL PAIN [None]
  - DRUG TOXICITY [None]
  - HEPATIC PAIN [None]
  - LETHARGY [None]
  - MALAISE [None]
  - MOROSE [None]
  - NAUSEA [None]
